FAERS Safety Report 18385092 (Version 4)
Quarter: 2021Q3

REPORT INFORMATION
  Report Type: Report from Study
  Country: JP (occurrence: JP)
  Receive Date: 20201015
  Receipt Date: 20210924
  Transmission Date: 20211014
  Serious: Yes (Hospitalization, Other)
  Sender: FDA-Public Use
  Company Number: JP-TAKEDA-2019TUS043468

PATIENT
  Age: 70 Year
  Sex: Male
  Weight: 64.5 kg

DRUGS (175)
  1. BORTEZOMIB. [Suspect]
     Active Substance: BORTEZOMIB
     Indication: PLASMA CELL MYELOMA
     Dosage: 1.3 MILLIGRAM/SQ. METER, QD
     Route: 065
     Dates: start: 20180221, end: 20180221
  2. BORTEZOMIB. [Suspect]
     Active Substance: BORTEZOMIB
     Dosage: 1.3 MILLIGRAM/SQ. METER, QD
     Route: 065
     Dates: start: 20180604, end: 20180604
  3. BORTEZOMIB. [Suspect]
     Active Substance: BORTEZOMIB
     Dosage: 1.3 MILLIGRAM/SQ. METER, QD
     Route: 065
     Dates: start: 20180607, end: 20180607
  4. BORTEZOMIB. [Suspect]
     Active Substance: BORTEZOMIB
     Dosage: 1.3 MILLIGRAM/SQ. METER, QD
     Route: 065
     Dates: start: 20180702, end: 20180702
  5. BORTEZOMIB. [Suspect]
     Active Substance: BORTEZOMIB
     Dosage: 1.3 MILLIGRAM/SQ. METER, QD
     Route: 065
     Dates: start: 20210828, end: 20210828
  6. BORTEZOMIB. [Suspect]
     Active Substance: BORTEZOMIB
     Dosage: 1.3 MILLIGRAM/SQ. METER, QD
     Route: 065
     Dates: start: 20210831, end: 20210831
  7. DECADRON [Suspect]
     Active Substance: DEXAMETHASONE
     Dosage: 20 MILLIGRAM, QD
     Route: 065
     Dates: start: 20180224, end: 20180225
  8. DECADRON [Suspect]
     Active Substance: DEXAMETHASONE
     Dosage: 20 MILLIGRAM, QD
     Route: 065
     Dates: start: 20180303, end: 20180304
  9. DECADRON [Suspect]
     Active Substance: DEXAMETHASONE
     Dosage: 16.5 MILLIGRAM, QD
     Route: 065
     Dates: start: 20180307, end: 20180307
  10. DECADRON [Suspect]
     Active Substance: DEXAMETHASONE
     Dosage: 10 MILLIGRAM, QD
     Route: 065
     Dates: start: 20180407, end: 20180408
  11. DECADRON [Suspect]
     Active Substance: DEXAMETHASONE
     Dosage: 10 MILLIGRAM, QD
     Route: 065
     Dates: start: 20180423, end: 20180424
  12. DECADRON [Suspect]
     Active Substance: DEXAMETHASONE
     Dosage: 16.5 MILLIGRAM, QD
     Route: 065
     Dates: start: 20180426, end: 20180426
  13. DECADRON [Suspect]
     Active Substance: DEXAMETHASONE
     Dosage: 20 MILLIGRAM, QD
     Route: 065
     Dates: start: 20180607, end: 20180608
  14. DECADRON [Suspect]
     Active Substance: DEXAMETHASONE
     Dosage: 10 MILLIGRAM, QD
     Route: 065
     Dates: start: 20180720, end: 20180720
  15. DARZALEX [Suspect]
     Active Substance: DARATUMUMAB
     Dosage: 16 MILLIGRAM/KILOGRAM, QD
     Route: 041
     Dates: start: 20180502, end: 20180502
  16. DARZALEX [Suspect]
     Active Substance: DARATUMUMAB
     Dosage: 16 MILLIGRAM/KILOGRAM, QD
     Route: 041
     Dates: start: 20180628, end: 20180628
  17. DARZALEX [Suspect]
     Active Substance: DARATUMUMAB
     Dosage: 16 MILLIGRAM/KILOGRAM, QD
     Route: 041
     Dates: start: 20181003, end: 20181003
  18. DARZALEX [Suspect]
     Active Substance: DARATUMUMAB
     Dosage: 16 MILLIGRAM/KILOGRAM, QD
     Route: 041
     Dates: start: 20181025, end: 20181025
  19. DARZALEX [Suspect]
     Active Substance: DARATUMUMAB
     Dosage: 16 MILLIGRAM/KILOGRAM, QD
     Route: 041
     Dates: start: 20181101, end: 20181101
  20. DARZALEX [Suspect]
     Active Substance: DARATUMUMAB
     Dosage: 16 MILLIGRAM/KILOGRAM, QD
     Route: 041
     Dates: start: 20181108, end: 20181108
  21. MEROPENEM. [Concomitant]
     Active Substance: MEROPENEM
     Dosage: 0.5 GRAM, QD
     Route: 065
     Dates: start: 20181217, end: 20181217
  22. PLATELETS [Concomitant]
     Active Substance: HUMAN PLATELET, ALLOGENIC
     Indication: PLATELET COUNT DECREASED
     Dosage: 10 INTERNATIONAL UNIT, QD
     Route: 065
     Dates: start: 20180301, end: 20180301
  23. GLIMEPIRIDE. [Concomitant]
     Active Substance: GLIMEPIRIDE
     Dosage: 2.5 GRAM, QD
     Route: 048
     Dates: start: 20180407, end: 20180408
  24. MIRCERA [Concomitant]
     Active Substance: METHOXY POLYETHYLENE GLYCOL-EPOETIN BETA
     Indication: RENAL IMPAIRMENT
     Dosage: 100 MICROGRAM, QD
     Route: 065
     Dates: start: 20180507, end: 20180507
  25. CEFTRIAXONE SODIUM. [Concomitant]
     Active Substance: CEFTRIAXONE SODIUM
     Indication: PHARYNGITIS
     Dosage: 2 GRAM, QD
     Route: 042
     Dates: start: 20180617, end: 20180617
  26. NEOSTELIN GREEN [Concomitant]
     Active Substance: BENZETHONIUM CHLORIDE
     Indication: PYREXIA
     Dosage: 2 MILLILITER, QD
     Route: 065
     Dates: start: 20180812, end: 20180816
  27. GLUCOSE [Concomitant]
     Active Substance: DEXTROSE
     Indication: HEPATIC FUNCTION ABNORMAL
     Dosage: 500 MILLILITER, QD
     Route: 065
     Dates: start: 20180906, end: 20180910
  28. BORTEZOMIB. [Suspect]
     Active Substance: BORTEZOMIB
     Dosage: 1.3 MILLIGRAM/SQ. METER, QD
     Route: 065
     Dates: start: 20180514, end: 20180514
  29. BORTEZOMIB. [Suspect]
     Active Substance: BORTEZOMIB
     Dosage: 1.3 MILLIGRAM/SQ. METER, QD
     Route: 065
     Dates: start: 20180517, end: 20180517
  30. BORTEZOMIB. [Suspect]
     Active Substance: BORTEZOMIB
     Dosage: 1.3 MILLIGRAM/SQ. METER, QD
     Route: 065
     Dates: start: 20180705, end: 20180705
  31. BORTEZOMIB. [Suspect]
     Active Substance: BORTEZOMIB
     Dosage: 1.3 MILLIGRAM/SQ. METER, QD
     Route: 065
     Dates: start: 20180723, end: 20180723
  32. BORTEZOMIB. [Suspect]
     Active Substance: BORTEZOMIB
     Dosage: 1.3 MILLIGRAM/SQ. METER, QD
     Route: 065
     Dates: start: 20180730, end: 20180730
  33. DECADRON [Suspect]
     Active Substance: DEXAMETHASONE
     Dosage: 16.5 MILLIGRAM, QD
     Route: 065
     Dates: start: 20180228, end: 20180228
  34. DECADRON [Suspect]
     Active Substance: DEXAMETHASONE
     Dosage: 16.5 MILLIGRAM, QD
     Route: 065
     Dates: start: 20180405, end: 20180405
  35. DECADRON [Suspect]
     Active Substance: DEXAMETHASONE
     Dosage: 20 MILLIGRAM, QD
     Route: 065
     Dates: start: 20180601, end: 20180601
  36. DECADRON [Suspect]
     Active Substance: DEXAMETHASONE
     Dosage: 20 MILLIGRAM, QD
     Route: 065
     Dates: start: 20180604, end: 20180605
  37. DECADRON [Suspect]
     Active Substance: DEXAMETHASONE
     Dosage: 16.5 MILLIGRAM, QD
     Route: 065
     Dates: start: 20180628, end: 20180628
  38. DECADRON [Suspect]
     Active Substance: DEXAMETHASONE
     Dosage: 10 MILLIGRAM, QD
     Route: 065
     Dates: start: 20180709, end: 20180710
  39. DECADRON [Suspect]
     Active Substance: DEXAMETHASONE
     Dosage: 10 MILLIGRAM, QD
     Route: 065
     Dates: start: 20180821, end: 20180821
  40. DECADRON [Suspect]
     Active Substance: DEXAMETHASONE
     Dosage: 10 MILLIGRAM, QD
     Route: 065
     Dates: start: 20180824, end: 20180825
  41. DECADRON [Suspect]
     Active Substance: DEXAMETHASONE
     Dosage: 10 MILLIGRAM, QD
     Route: 065
     Dates: start: 20180831, end: 20190219
  42. DECADRON [Suspect]
     Active Substance: DEXAMETHASONE
     Dosage: 16.5 MILLIGRAM, QD
     Route: 065
     Dates: start: 20180926, end: 20190204
  43. ACICLOVIR [Suspect]
     Active Substance: ACYCLOVIR
     Indication: PLASMA CELL MYELOMA
     Dosage: 200 MILLIGRAM, QD
     Route: 048
     Dates: start: 20180313, end: 20180905
  44. SEIBULE [Suspect]
     Active Substance: MIGLITOL
     Dosage: 25 MILLIGRAM, QD
     Route: 048
     Dates: start: 20180906, end: 20180906
  45. POLARAMINE [Concomitant]
     Active Substance: DEXCHLORPHENIRAMINE MALEATE
     Indication: PLASMA CELL MYELOMA
     Dosage: UNK
     Route: 065
     Dates: start: 20180221
  46. CALONAL [Concomitant]
     Active Substance: ACETAMINOPHEN
     Dosage: 200 MILLIGRAM, QD
     Route: 065
     Dates: start: 20180319, end: 20180322
  47. MEROPENEM. [Concomitant]
     Active Substance: MEROPENEM
     Dosage: 0.5 GRAM, QD
     Route: 065
     Dates: start: 20180811, end: 20180811
  48. PLATELETS [Concomitant]
     Active Substance: HUMAN PLATELET, ALLOGENIC
     Dosage: 10 INTERNATIONAL UNIT, QD
     Route: 065
     Dates: start: 20180304, end: 20180304
  49. GLIMEPIRIDE. [Concomitant]
     Active Substance: GLIMEPIRIDE
     Dosage: 2 GRAM, QD
     Route: 048
     Dates: start: 20180328, end: 20180328
  50. GLIMEPIRIDE. [Concomitant]
     Active Substance: GLIMEPIRIDE
     Dosage: 2.5 GRAM, QD
     Route: 048
     Dates: start: 20180329, end: 20180329
  51. LENALIDOMIDE [Concomitant]
     Active Substance: LENALIDOMIDE
     Dosage: 5 MILLIGRAM, QD
     Route: 048
     Dates: start: 20181122, end: 20181205
  52. LENALIDOMIDE [Concomitant]
     Active Substance: LENALIDOMIDE
     Dosage: 5 MILLIGRAM, QD
     Route: 048
     Dates: start: 20190121, end: 20190210
  53. NEO MINOPHAGEN C [Concomitant]
     Indication: HEPATIC FUNCTION ABNORMAL
     Dosage: 40 MILLILITER, QD
     Route: 042
     Dates: start: 20180906, end: 20180909
  54. AMOXICILLIN TRIHYDRATE [Concomitant]
     Active Substance: AMOXICILLIN
     Indication: PNEUMONIA
     Dosage: 750 MILLIGRAM, QD
     Route: 048
     Dates: start: 20181206, end: 20181209
  55. BORTEZOMIB. [Suspect]
     Active Substance: BORTEZOMIB
     Dosage: 1.3 MILLIGRAM/SQ. METER, QD
     Route: 065
     Dates: start: 20180328, end: 20180328
  56. BORTEZOMIB. [Suspect]
     Active Substance: BORTEZOMIB
     Dosage: 1.3 MILLIGRAM/SQ. METER, QD
     Route: 065
     Dates: start: 20180331, end: 20180331
  57. BORTEZOMIB. [Suspect]
     Active Substance: BORTEZOMIB
     Dosage: 1.3 MILLIGRAM/SQ. METER, QD
     Route: 065
     Dates: start: 20180409, end: 20180409
  58. BORTEZOMIB. [Suspect]
     Active Substance: BORTEZOMIB
     Dosage: 1.3 MILLIGRAM/SQ. METER, QD
     Route: 065
     Dates: start: 20180426, end: 20180426
  59. DECADRON [Suspect]
     Active Substance: DEXAMETHASONE
     Dosage: 20 MILLIGRAM, QD
     Route: 065
     Dates: start: 20180301, end: 20180301
  60. DECADRON [Suspect]
     Active Substance: DEXAMETHASONE
     Dosage: 10 MILLIGRAM, QD
     Route: 065
     Dates: start: 20180329, end: 20180329
  61. DECADRON [Suspect]
     Active Substance: DEXAMETHASONE
     Dosage: 16.5 MILLIGRAM, QD
     Route: 065
     Dates: start: 20180419, end: 20180419
  62. DECADRON [Suspect]
     Active Substance: DEXAMETHASONE
     Dosage: 16.5 MILLIGRAM, QD
     Route: 065
     Dates: start: 20180502, end: 20180502
  63. DECADRON [Suspect]
     Active Substance: DEXAMETHASONE
     Dosage: 20 MILLIGRAM, QD
     Route: 065
     Dates: start: 20180611, end: 20180612
  64. DECADRON [Suspect]
     Active Substance: DEXAMETHASONE
     Dosage: 10 MILLIGRAM, QD
     Route: 065
     Dates: start: 20180702, end: 20180703
  65. DECADRON [Suspect]
     Active Substance: DEXAMETHASONE
     Dosage: 10 MILLIGRAM, QD
     Route: 065
     Dates: start: 20180719, end: 20180719
  66. DARZALEX [Suspect]
     Active Substance: DARATUMUMAB
     Dosage: 16 MILLIGRAM/KILOGRAM, QD
     Route: 041
     Dates: start: 20180426, end: 20180426
  67. DARZALEX [Suspect]
     Active Substance: DARATUMUMAB
     Dosage: 16 MILLIGRAM/KILOGRAM, QD
     Route: 041
     Dates: start: 20180510, end: 20180510
  68. DARZALEX [Suspect]
     Active Substance: DARATUMUMAB
     Dosage: 16 MILLIGRAM/KILOGRAM, QD
     Route: 041
     Dates: start: 20181122, end: 20181122
  69. DARZALEX [Suspect]
     Active Substance: DARATUMUMAB
     Dosage: 16 MILLIGRAM/KILOGRAM, QD
     Route: 041
     Dates: start: 20190107, end: 20190107
  70. BAKTAR [Suspect]
     Active Substance: SULFAMETHOXAZOLE\TRIMETHOPRIM
     Dosage: UNK, BID
     Route: 048
     Dates: start: 20180604, end: 20180905
  71. CEFEPIME HYDROCHLORIDE. [Concomitant]
     Active Substance: CEFEPIME HYDROCHLORIDE
     Indication: PNEUMONIA
     Dosage: 2 GRAM, QD
     Route: 065
     Dates: start: 20180314, end: 20180317
  72. MEROPENEM. [Concomitant]
     Active Substance: MEROPENEM
     Dosage: 1.5 GRAM, QD
     Route: 065
     Dates: start: 20181211, end: 20181211
  73. AMARYL [Concomitant]
     Active Substance: GLIMEPIRIDE
     Indication: DIABETES MELLITUS
     Dosage: 2 GRAM, QD
     Route: 048
     Dates: start: 20180226, end: 20180304
  74. GLIMEPIRIDE. [Concomitant]
     Active Substance: GLIMEPIRIDE
     Dosage: 1 GRAM, QD
     Route: 048
     Dates: start: 20180309, end: 20180327
  75. URSODEOXYCHOLIC ACID [Concomitant]
     Active Substance: URSODIOL
     Indication: HEPATIC FUNCTION ABNORMAL
     Dosage: 600 MILLIGRAM, QD
     Route: 048
     Dates: start: 20180906, end: 20181016
  76. NEO MINOPHAGEN C [Concomitant]
     Dosage: 20 MILLILITER, QD
     Route: 042
     Dates: start: 20180910, end: 20180912
  77. BORTEZOMIB. [Suspect]
     Active Substance: BORTEZOMIB
     Dosage: 1.3 MILLIGRAM/SQ. METER, QD
     Route: 065
     Dates: start: 20180521, end: 20180521
  78. DECADRON [Suspect]
     Active Substance: DEXAMETHASONE
     Dosage: 20 MILLIGRAM, QD
     Route: 065
     Dates: start: 20180308, end: 20180308
  79. DECADRON [Suspect]
     Active Substance: DEXAMETHASONE
     Dosage: 16.5 MILLIGRAM, QD
     Route: 065
     Dates: start: 20180328, end: 20180328
  80. DECADRON [Suspect]
     Active Substance: DEXAMETHASONE
     Dosage: 10 MILLIGRAM, QD
     Route: 065
     Dates: start: 20180513, end: 20180515
  81. DECADRON [Suspect]
     Active Substance: DEXAMETHASONE
     Dosage: 10 MILLIGRAM, QD
     Route: 065
     Dates: start: 20180522, end: 20180522
  82. DECADRON [Suspect]
     Active Substance: DEXAMETHASONE
     Dosage: 10 MILLIGRAM, QD
     Route: 065
     Dates: start: 20180726, end: 20180727
  83. DECADRON [Suspect]
     Active Substance: DEXAMETHASONE
     Dosage: 10 MILLIGRAM, QD
     Route: 065
     Dates: start: 20180730, end: 20180731
  84. DECADRON [Suspect]
     Active Substance: DEXAMETHASONE
     Dosage: 10 MILLIGRAM, QD
     Route: 065
     Dates: start: 20180828, end: 20180829
  85. DECADRON [Suspect]
     Active Substance: DEXAMETHASONE
     Dosage: 16.5 MILLIGRAM, QD
     Route: 065
     Dates: start: 20180914, end: 20180914
  86. DARZALEX [Suspect]
     Active Substance: DARATUMUMAB
     Dosage: 16 MILLIGRAM/KILOGRAM, QD
     Route: 041
     Dates: start: 20180531, end: 20180531
  87. DARZALEX [Suspect]
     Active Substance: DARATUMUMAB
     Dosage: 16 MILLIGRAM/KILOGRAM, QD
     Route: 041
     Dates: start: 20180821, end: 20180821
  88. CALONAL [Concomitant]
     Active Substance: ACETAMINOPHEN
     Dosage: 400 MILLIGRAM, QD
     Route: 065
     Dates: start: 20180811, end: 20180812
  89. CEFEPIME HYDROCHLORIDE. [Concomitant]
     Active Substance: CEFEPIME HYDROCHLORIDE
     Dosage: 2 GRAM, QD
     Route: 065
     Dates: start: 20181210, end: 20181210
  90. MEROPENEM. [Concomitant]
     Active Substance: MEROPENEM
     Indication: PNEUMONIA
     Dosage: 2 GRAM, QD
     Route: 065
     Dates: start: 20180318, end: 20180325
  91. MEROPENEM. [Concomitant]
     Active Substance: MEROPENEM
     Dosage: 1 GRAM, QD
     Route: 065
     Dates: start: 20180618, end: 20180618
  92. BORTEZOMIB. [Suspect]
     Active Substance: BORTEZOMIB
     Dosage: 1 MILLIGRAM/SQ. METER, QD
     Route: 065
     Dates: start: 20180228, end: 20180228
  93. BORTEZOMIB. [Suspect]
     Active Substance: BORTEZOMIB
     Dosage: 1.3 MILLIGRAM/SQ. METER, QD
     Route: 065
     Dates: start: 20180510, end: 20180510
  94. BORTEZOMIB. [Suspect]
     Active Substance: BORTEZOMIB
     Dosage: 1.3 MILLIGRAM/SQ. METER, QD
     Route: 065
     Dates: start: 20180719, end: 20180719
  95. DECADRON [Suspect]
     Active Substance: DEXAMETHASONE
     Dosage: 10 MILLIGRAM, QD
     Route: 065
     Dates: start: 20180420, end: 20180420
  96. DECADRON [Suspect]
     Active Substance: DEXAMETHASONE
     Dosage: 10 MILLIGRAM, QD
     Route: 065
     Dates: start: 20180521, end: 20180521
  97. DARZALEX [Suspect]
     Active Substance: DARATUMUMAB
     Dosage: 16 MILLIGRAM/KILOGRAM, QD
     Route: 041
     Dates: start: 20180228, end: 20180228
  98. DARZALEX [Suspect]
     Active Substance: DARATUMUMAB
     Dosage: 16 MILLIGRAM/KILOGRAM, QD
     Route: 041
     Dates: start: 20180307, end: 20180307
  99. DARZALEX [Suspect]
     Active Substance: DARATUMUMAB
     Dosage: 16 MILLIGRAM/KILOGRAM, QD
     Route: 041
     Dates: start: 20180412, end: 20180412
  100. DARZALEX [Suspect]
     Active Substance: DARATUMUMAB
     Dosage: 16 MILLIGRAM/KILOGRAM, QD
     Route: 041
     Dates: start: 20181010, end: 20181010
  101. DARZALEX [Suspect]
     Active Substance: DARATUMUMAB
     Dosage: 16 MILLIGRAM/KILOGRAM, QD
     Route: 041
     Dates: start: 20190121, end: 20190121
  102. MONTELUKAST SODIUM. [Concomitant]
     Active Substance: MONTELUKAST SODIUM
     Indication: PLASMA CELL MYELOMA
     Dosage: UNK
     Route: 048
     Dates: start: 20180221
  103. CALONAL [Concomitant]
     Active Substance: ACETAMINOPHEN
     Indication: PNEUMONIA
     Dosage: 400 MILLIGRAM, QD
     Route: 065
     Dates: start: 20180315, end: 20180315
  104. FUNGUARD [Concomitant]
     Active Substance: MICAFUNGIN SODIUM
     Indication: PNEUMONIA
     Dosage: 150 MILLIGRAM, QD
     Route: 065
     Dates: start: 20180316, end: 20180321
  105. MEROPENEM. [Concomitant]
     Active Substance: MEROPENEM
     Dosage: 2 GRAM, QD
     Route: 065
     Dates: start: 20180812, end: 20180816
  106. GLIMEPIRIDE. [Concomitant]
     Active Substance: GLIMEPIRIDE
     Dosage: 2.5 GRAM, QD
     Route: 048
     Dates: start: 20180423, end: 20180424
  107. CANDESARTAN. [Concomitant]
     Active Substance: CANDESARTAN
     Indication: HYPERTENSION
     Dosage: 8 MILLIGRAM, QD
     Route: 048
     Dates: start: 20180226
  108. FLAVERIC [Concomitant]
     Active Substance: BENPROPERINE PHOSPHATE
     Indication: PNEUMONIA
     Dosage: 60 MILLIGRAM, QD
     Route: 048
     Dates: start: 20181206, end: 20181210
  109. BORTEZOMIB. [Suspect]
     Active Substance: BORTEZOMIB
     Dosage: 1.3 MILLIGRAM/SQ. METER, QD
     Route: 065
     Dates: start: 20180423, end: 20180423
  110. BORTEZOMIB. [Suspect]
     Active Substance: BORTEZOMIB
     Dosage: 1.3 MILLIGRAM/SQ. METER, QD
     Route: 065
     Dates: start: 20180430, end: 20180430
  111. BORTEZOMIB. [Suspect]
     Active Substance: BORTEZOMIB
     Dosage: 1.3 MILLIGRAM/SQ. METER, QD
     Route: 065
     Dates: start: 20180628, end: 20180628
  112. BORTEZOMIB. [Suspect]
     Active Substance: BORTEZOMIB
     Dosage: 1.3 MILLIGRAM/SQ. METER, QD
     Route: 065
     Dates: start: 20210824, end: 20210824
  113. DECADRON [Suspect]
     Active Substance: DEXAMETHASONE
     Dosage: 10 MILLIGRAM, QD
     Route: 065
     Dates: start: 20180503, end: 20180503
  114. DECADRON [Suspect]
     Active Substance: DEXAMETHASONE
     Dosage: 10 MILLIGRAM, QD
     Route: 065
     Dates: start: 20180531, end: 20180531
  115. DECADRON [Suspect]
     Active Substance: DEXAMETHASONE
     Dosage: 10 MILLIGRAM, QD
     Route: 065
     Dates: start: 20180629, end: 20180629
  116. DECADRON [Suspect]
     Active Substance: DEXAMETHASONE
     Dosage: 10 MILLIGRAM, QD
     Route: 065
     Dates: start: 20180723, end: 20180724
  117. DARZALEX [Suspect]
     Active Substance: DARATUMUMAB
     Dosage: 16 MILLIGRAM/KILOGRAM, QD
     Route: 041
     Dates: start: 20180328, end: 20180328
  118. DARZALEX [Suspect]
     Active Substance: DARATUMUMAB
     Dosage: 16 MILLIGRAM/KILOGRAM, QD
     Route: 041
     Dates: start: 20180405, end: 20180405
  119. DARZALEX [Suspect]
     Active Substance: DARATUMUMAB
     Dosage: 16 MILLIGRAM/KILOGRAM, QD
     Route: 041
     Dates: start: 20180926, end: 20180926
  120. DARZALEX [Suspect]
     Active Substance: DARATUMUMAB
     Dosage: 16 MILLIGRAM/KILOGRAM, QD
     Route: 041
     Dates: start: 20181017, end: 20181017
  121. SEIBULE [Suspect]
     Active Substance: MIGLITOL
     Dosage: 75 MILLIGRAM, QD
     Route: 048
     Dates: start: 20180425, end: 20180905
  122. CALONAL [Concomitant]
     Active Substance: ACETAMINOPHEN
     Dosage: 400 MILLIGRAM, QD
     Route: 065
     Dates: start: 20180619, end: 20180619
  123. CEFEPIME HYDROCHLORIDE. [Concomitant]
     Active Substance: CEFEPIME HYDROCHLORIDE
     Dosage: 2 GRAM, QD
     Route: 065
     Dates: start: 20180619, end: 20180624
  124. GLIMEPIRIDE. [Concomitant]
     Active Substance: GLIMEPIRIDE
     Indication: DIABETES MELLITUS
     Dosage: 2 GRAM, QD
     Route: 048
     Dates: start: 20180305, end: 20180308
  125. GLIMEPIRIDE. [Concomitant]
     Active Substance: GLIMEPIRIDE
     Dosage: 2.5 GRAM, QD
     Route: 048
     Dates: start: 20180331, end: 20180401
  126. GLIMEPIRIDE. [Concomitant]
     Active Substance: GLIMEPIRIDE
     Dosage: 2.5 GRAM, QD
     Route: 048
     Dates: start: 20180405, end: 20180405
  127. GLIMEPIRIDE. [Concomitant]
     Active Substance: GLIMEPIRIDE
     Dosage: 2.5 GRAM, QD
     Route: 048
     Dates: start: 20180411, end: 20180412
  128. VOGLIBOSE [Concomitant]
     Active Substance: VOGLIBOSE
     Indication: DIABETES MELLITUS
     Dosage: .9 MILLIGRAM, QD
     Route: 048
     Dates: start: 20180305, end: 20180424
  129. LENALIDOMIDE [Concomitant]
     Active Substance: LENALIDOMIDE
     Dosage: 5 MILLIGRAM, QD
     Route: 048
     Dates: start: 20181025, end: 20181114
  130. FLAVERIC [Concomitant]
     Active Substance: BENPROPERINE PHOSPHATE
     Dosage: 60 MILLIGRAM, QD
     Route: 048
     Dates: start: 20181220, end: 20181225
  131. CALFINA [Concomitant]
     Indication: RENAL IMPAIRMENT
     Dosage: 0.25 MICROGRAM, QD
     Route: 048
     Dates: start: 20181210, end: 20190108
  132. RELENZA [Concomitant]
     Active Substance: ZANAMIVIR
     Indication: PYREXIA
     Dosage: 20 MILLIGRAM, QD
     Route: 055
     Dates: start: 20190125, end: 20190130
  133. BORTEZOMIB. [Suspect]
     Active Substance: BORTEZOMIB
     Dosage: 1.3 MILLIGRAM/SQ. METER, QD
     Route: 065
     Dates: start: 20180224, end: 20180224
  134. BORTEZOMIB. [Suspect]
     Active Substance: BORTEZOMIB
     Dosage: 1.3 MILLIGRAM/SQ. METER, QD
     Route: 065
     Dates: start: 20180419, end: 20180419
  135. BORTEZOMIB. [Suspect]
     Active Substance: BORTEZOMIB
     Dosage: 1.3 MILLIGRAM/SQ. METER, QD
     Route: 065
     Dates: start: 20180709, end: 20180709
  136. BORTEZOMIB. [Suspect]
     Active Substance: BORTEZOMIB
     Dosage: 1.3 MILLIGRAM/SQ. METER, QD
     Route: 065
     Dates: start: 20180726, end: 20180726
  137. DECADRON [Suspect]
     Active Substance: DEXAMETHASONE
     Indication: PLASMA CELL MYELOMA
     Dosage: 20 MILLIGRAM, QD
     Route: 065
     Dates: start: 20180222, end: 20180222
  138. DECADRON [Suspect]
     Active Substance: DEXAMETHASONE
     Dosage: 10 MILLIGRAM, QD
     Route: 065
     Dates: start: 20180411, end: 20180411
  139. DECADRON [Suspect]
     Active Substance: DEXAMETHASONE
     Dosage: 16.5 MILLIGRAM, QD
     Route: 065
     Dates: start: 20180412, end: 20180412
  140. DECADRON [Suspect]
     Active Substance: DEXAMETHASONE
     Dosage: 10 MILLIGRAM, QD
     Route: 065
     Dates: start: 20180430, end: 20180430
  141. DECADRON [Suspect]
     Active Substance: DEXAMETHASONE
     Dosage: 16.5 MILLIGRAM, QD
     Route: 065
     Dates: start: 20180510, end: 20180510
  142. DECADRON [Suspect]
     Active Substance: DEXAMETHASONE
     Dosage: 10 MILLIGRAM, QD
     Route: 065
     Dates: start: 20180517, end: 20180518
  143. DECADRON [Suspect]
     Active Substance: DEXAMETHASONE
     Dosage: 10 MILLIGRAM, QD
     Route: 065
     Dates: start: 20180822, end: 20180822
  144. DARZALEX [Suspect]
     Active Substance: DARATUMUMAB
     Dosage: 16 MILLIGRAM/KILOGRAM, QD
     Route: 041
     Dates: start: 20180914, end: 20180914
  145. DARZALEX [Suspect]
     Active Substance: DARATUMUMAB
     Dosage: 16 MILLIGRAM/KILOGRAM, QD
     Route: 041
     Dates: start: 20190204, end: 20190204
  146. DEXART [Concomitant]
     Active Substance: DEXAMETHASONE SODIUM PHOSPHATE
     Indication: PLASMA CELL MYELOMA
     Dosage: 16.5 MILLIGRAM, QD
     Route: 065
     Dates: start: 20180221, end: 20180221
  147. MEROPENEM. [Concomitant]
     Active Substance: MEROPENEM
     Dosage: 1 GRAM, QD
     Route: 065
     Dates: start: 20180326, end: 20180326
  148. TRAZENTA [Concomitant]
     Active Substance: LINAGLIPTIN
     Indication: DIABETES MELLITUS
     Dosage: 5 MILLIGRAM, QD
     Route: 048
  149. LENALIDOMIDE [Concomitant]
     Active Substance: LENALIDOMIDE
     Indication: PLASMA CELL MYELOMA
     Dosage: 5 MILLIGRAM, QD
     Route: 048
     Dates: start: 20180926, end: 20181016
  150. LENALIDOMIDE [Concomitant]
     Active Substance: LENALIDOMIDE
     Dosage: 5 MILLIGRAM, QD
     Route: 048
     Dates: start: 20190107, end: 20190113
  151. BORTEZOMIB. [Suspect]
     Active Substance: BORTEZOMIB
     Dosage: 1.3 MILLIGRAM/SQ. METER, QD
     Route: 065
     Dates: start: 20180405, end: 20180405
  152. BORTEZOMIB. [Suspect]
     Active Substance: BORTEZOMIB
     Dosage: 1.3 MILLIGRAM/SQ. METER, QD
     Route: 065
     Dates: start: 20180531, end: 20180531
  153. BORTEZOMIB. [Suspect]
     Active Substance: BORTEZOMIB
     Dosage: 1.3 MILLIGRAM/SQ. METER, QD
     Route: 065
     Dates: start: 20180611, end: 20180611
  154. BORTEZOMIB. [Suspect]
     Active Substance: BORTEZOMIB
     Dosage: 1.3 MILLIGRAM/SQ. METER, QD
     Route: 065
     Dates: start: 20210821, end: 20210821
  155. DECADRON [Suspect]
     Active Substance: DEXAMETHASONE
     Dosage: 10 MILLIGRAM, QD
     Route: 065
     Dates: start: 20180331, end: 20180401
  156. DECADRON [Suspect]
     Active Substance: DEXAMETHASONE
     Dosage: 10 MILLIGRAM, QD
     Route: 065
     Dates: start: 20180427, end: 20180427
  157. DECADRON [Suspect]
     Active Substance: DEXAMETHASONE
     Dosage: 10 MILLIGRAM, QD
     Route: 065
     Dates: start: 20180511, end: 20180511
  158. DECADRON [Suspect]
     Active Substance: DEXAMETHASONE
     Dosage: 10 MILLIGRAM, QD
     Route: 065
     Dates: start: 20180705, end: 20180706
  159. DARZALEX [Suspect]
     Active Substance: DARATUMUMAB
     Indication: PLASMA CELL MYELOMA
     Dosage: 16 MILLIGRAM/KILOGRAM, QD
     Route: 041
     Dates: start: 20180221, end: 20180221
  160. DARZALEX [Suspect]
     Active Substance: DARATUMUMAB
     Dosage: 16 MILLIGRAM/KILOGRAM, QD
     Route: 041
     Dates: start: 20180419, end: 20180419
  161. DARZALEX [Suspect]
     Active Substance: DARATUMUMAB
     Dosage: 16 MILLIGRAM/KILOGRAM, QD
     Route: 041
     Dates: start: 20180719, end: 20180719
  162. DARZALEX [Suspect]
     Active Substance: DARATUMUMAB
     Dosage: 16 MILLIGRAM/KILOGRAM, QD
     Route: 041
     Dates: start: 20181115, end: 20181115
  163. BAKTAR [Suspect]
     Active Substance: SULFAMETHOXAZOLE\TRIMETHOPRIM
     Indication: PLASMA CELL MYELOMA
     Dosage: UNK
     Route: 048
     Dates: start: 20180317
  164. SEIBULE [Suspect]
     Active Substance: MIGLITOL
     Indication: DIABETES MELLITUS
     Dosage: 75 MILLIGRAM, QD
     Route: 048
     Dates: start: 20180304
  165. CALONAL [Concomitant]
     Active Substance: ACETAMINOPHEN
     Dosage: 1000 MILLIGRAM, QD
     Route: 065
     Dates: start: 20180316, end: 20180316
  166. CALONAL [Concomitant]
     Active Substance: ACETAMINOPHEN
     Dosage: 600 MILLIGRAM, QD
     Route: 065
     Dates: start: 20180317, end: 20180317
  167. CALONAL [Concomitant]
     Active Substance: ACETAMINOPHEN
     Dosage: 400 MILLIGRAM, QD
     Route: 065
     Dates: start: 20180318, end: 20180318
  168. CEFEPIME HYDROCHLORIDE. [Concomitant]
     Active Substance: CEFEPIME HYDROCHLORIDE
     Dosage: 1 GRAM, QD
     Route: 065
     Dates: start: 20180810, end: 20180811
  169. CEFEPIME HYDROCHLORIDE. [Concomitant]
     Active Substance: CEFEPIME HYDROCHLORIDE
     Dosage: 2 GRAM, QD
     Route: 065
     Dates: start: 20181206, end: 20181208
  170. MEROPENEM. [Concomitant]
     Active Substance: MEROPENEM
     Dosage: 0.5 GRAM, QD
     Route: 065
     Dates: start: 20180810, end: 20180810
  171. MEROPENEM. [Concomitant]
     Active Substance: MEROPENEM
     Dosage: 1 GRAM, QD
     Route: 065
     Dates: start: 20181212, end: 20181216
  172. VANCOMYCIN [Concomitant]
     Active Substance: VANCOMYCIN
     Indication: PNEUMONIA
     Dosage: 1 GRAM, BID
     Route: 065
     Dates: start: 20180321, end: 20180329
  173. GLIMEPIRIDE. [Concomitant]
     Active Substance: GLIMEPIRIDE
     Dosage: 2.5 GRAM, QD
     Route: 048
     Dates: start: 20180419, end: 20180420
  174. RED BLOOD CELLS, CONCENTRATED [Concomitant]
     Active Substance: HUMAN RED BLOOD CELL
     Indication: MALAISE
     Dosage: 2 INTERNATIONAL UNIT, QD
     Route: 065
     Dates: start: 20180427, end: 20180427
  175. JUSO [Concomitant]
     Active Substance: SODIUM BICARBONATE
     Indication: HEPATIC FUNCTION ABNORMAL
     Dosage: 1500 MILLIGRAM, QD
     Route: 048
     Dates: start: 20181011

REACTIONS (11)
  - Renal impairment [Recovering/Resolving]
  - Hypertension [Recovered/Resolved]
  - Pharyngitis [Recovered/Resolved]
  - Bronchitis [Recovering/Resolving]
  - Platelet count decreased [Recovered/Resolved]
  - Influenza [Recovered/Resolved]
  - Hepatic function abnormal [Recovering/Resolving]
  - Pneumonia [Recovering/Resolving]
  - Malaise [Recovered/Resolved]
  - Diabetes mellitus [Not Recovered/Not Resolved]
  - Nephrogenic anaemia [Not Recovered/Not Resolved]

NARRATIVE: CASE EVENT DATE: 20180222
